FAERS Safety Report 5399978-1 (Version None)
Quarter: 2007Q3

REPORT INFORMATION
  Report Type: 
  Country: None (occurrence: None)
  Receive Date: 20070726
  Receipt Date: 20070726
  Transmission Date: 20080115
  Serious: No
  Sender: FDA-Public Use
  Company Number: None

PATIENT
  Age: 55 Year
  Sex: 0
  Weight: 117.9352 kg

DRUGS (21)
  1. ISOVUE-128 [Suspect]
     Indication: DRUG USE FOR UNKNOWN INDICATION
     Dosage: SY
     Dates: start: 20070201
  2. DILAUDID [Concomitant]
  3. OXYCONTIN [Concomitant]
  4. FENTANYL LOLLIPOPS [Concomitant]
  5. NEURONTIN [Concomitant]
  6. VALTREX [Concomitant]
  7. LIPITOR [Concomitant]
  8. LORATADINE [Concomitant]
  9. SUDAFED 12 HOUR [Concomitant]
  10. LEXAPRO [Concomitant]
  11. ARICEPT [Concomitant]
  12. AMITRIPTYLINE HCL [Concomitant]
  13. TOPROL-XL [Concomitant]
  14. NAMENDA [Concomitant]
  15. PHENERGAN HCL [Concomitant]
  16. REGLAN [Concomitant]
  17. VALIUM [Concomitant]
  18. AMBIEN [Concomitant]
  19. ALTACE [Concomitant]
  20. TOPAMAX [Concomitant]
  21. DETROL LA [Concomitant]

REACTIONS (1)
  - EXTRAVASATION [None]
